FAERS Safety Report 8166992-2 (Version None)
Quarter: 2012Q1

REPORT INFORMATION
  Report Type: 
  Country: None (occurrence: None)
  Receive Date: 20120227
  Receipt Date: 20120214
  Transmission Date: 20120608
  Serious: Yes (Hospitalization)
  Sender: FDA-Public Use
  Company Number: US-NOVOPROD-344722

PATIENT
  Age: 66 Year
  Sex: Male
  Weight: 124.26 kg

DRUGS (6)
  1. LOVENOX [Concomitant]
  2. LIRAGLUTIDE FLEXPEN [Suspect]
     Dosage: 0.6 MG, QD
     Route: 058
     Dates: start: 20120215
  3. ASPIRIN [Concomitant]
  4. PLAVIX [Concomitant]
  5. LIRAGLUTIDE FLEXPEN [Suspect]
     Indication: TYPE 2 DIABETES MELLITUS
     Dosage: 1.8 MG, QD
     Route: 058
     Dates: start: 20110201, end: 20120115
  6. TIMENTIN [Concomitant]
     Route: 042

REACTIONS (1)
  - CHOLECYSTITIS ACUTE [None]
